FAERS Safety Report 6211354-8 (Version None)
Quarter: 2009Q2

REPORT INFORMATION
  Report Type: 
  Country: None (occurrence: None)
  Receive Date: 20090528
  Receipt Date: 20090507
  Transmission Date: 20091009
  Serious: Yes (Hospitalization)
  Sender: FDA-Public Use
  Company Number: 8046656

PATIENT
  Age: 75 Year
  Sex: Female

DRUGS (10)
  1. KEPPRA [Suspect]
     Indication: EPILEPSY
     Dosage: 2.5 G /D IV
     Route: 042
  2. KEPPRA [Suspect]
     Indication: EPILEPSY
     Dosage: PO
     Route: 048
  3. AUGMENTIN '125' [Suspect]
     Indication: LOWER RESPIRATORY TRACT INFECTION
     Dosage: 1.2 G /D IV
     Route: 042
     Dates: start: 20090318, end: 20090322
  4. AUGMENTIN '125' [Suspect]
     Indication: LOWER RESPIRATORY TRACT INFECTION
     Dosage: 375 MG 3/D PO
     Route: 048
     Dates: start: 20090323, end: 20090324
  5. AMOXICILLIN [Suspect]
     Indication: LOWER RESPIRATORY TRACT INFECTION
     Dosage: 250 MG 3/D PO
     Route: 048
     Dates: start: 20090325, end: 20090326
  6. ESOMEPRAZOLE MAGNESIUM [Suspect]
     Dosage: IV
     Route: 042
  7. FERROUS FUMARATE [Concomitant]
  8. LAMOTRIGINE [Concomitant]
  9. SENNA [Concomitant]
  10. LANSOPRAZOLE [Concomitant]

REACTIONS (7)
  - BLOOD ALKALINE PHOSPHATASE INCREASED [None]
  - DRUG INTERACTION [None]
  - DYSPHAGIA [None]
  - GAMMA-GLUTAMYLTRANSFERASE INCREASED [None]
  - JAUNDICE [None]
  - LOWER RESPIRATORY TRACT INFECTION [None]
  - OCULAR ICTERUS [None]
